FAERS Safety Report 6468785-0 (Version None)
Quarter: 2009Q4

REPORT INFORMATION
  Report Type: 
  Country: None (occurrence: None)
  Receive Date: 20091203
  Receipt Date: 20080225
  Transmission Date: 20100525
  Serious: No
  Sender: FDA-Public Use
  Company Number: US-ELI_LILLY_AND_COMPANY-US_0508120936

PATIENT
  Sex: Male
  Weight: 140.59 kg

DRUGS (2)
  1. ZYPREXA [Suspect]
     Indication: ANXIETY
     Dosage: 2.5 MG, UNKNOWN
     Dates: start: 20010401
  2. ZYPREXA [Suspect]
     Dosage: 5 MG, UNK
     Dates: end: 20050901

REACTIONS (5)
  - BLOOD DISORDER [None]
  - DEPRESSION [None]
  - DIABETES MELLITUS [None]
  - OBESITY [None]
  - VISUAL IMPAIRMENT [None]
